FAERS Safety Report 4650706-4 (Version None)
Quarter: 2005Q2

REPORT INFORMATION
  Report Type: 
  Country: None (occurrence: None)
  Receive Date: 20050429
  Receipt Date: 20050425
  Transmission Date: 20051028
  Serious: Yes (Death, Other)
  Sender: FDA-Public Use
  Company Number: USA-2005-0019972

PATIENT
  Sex: Male

DRUGS (1)
  1. OXYCONTIN [Suspect]
     Dosage: MG

REACTIONS (4)
  - COMPLETED SUICIDE [None]
  - DRUG ABUSER [None]
  - DRUG DEPENDENCE [None]
  - MURDER [None]
